FAERS Safety Report 8182431-X (Version None)
Quarter: 2012Q1

REPORT INFORMATION
  Report Type: 
  Country: None (occurrence: None)
  Receive Date: 20120305
  Receipt Date: 20120221
  Transmission Date: 20120608
  Serious: Yes (Hospitalization)
  Sender: FDA-Public Use
  Company Number: US-BIOGENIDEC-2010BI024093

PATIENT
  Age: 41 Year
  Sex: Female

DRUGS (11)
  1. GABAPENTIN [Concomitant]
     Route: 048
     Dates: start: 20100624
  2. BACLOFEN [Concomitant]
  3. METHYLPREDNISOLONE [Concomitant]
  4. CIPROFLOXACIN [Concomitant]
     Dates: start: 20030703
  5. MACRODANTIN [Concomitant]
     Route: 048
     Dates: start: 20100624
  6. OXYBUTYNIN [Concomitant]
     Route: 048
     Dates: start: 20090630
  7. DEXAMETHASONE [Concomitant]
     Dates: start: 20100414
  8. TYSABRI [Suspect]
     Indication: MULTIPLE SCLEROSIS
     Route: 042
     Dates: start: 20080502, end: 20100614
  9. LEVOTHYROXINE SODIUM [Concomitant]
     Dates: start: 20090601
  10. NITROFURANTOIN [Concomitant]
  11. DETROL [Concomitant]

REACTIONS (6)
  - CALCULUS BLADDER [None]
  - URINARY TRACT INFECTION [None]
  - VERTEBRAL COLUMN MASS [None]
  - PERIARTHRITIS [None]
  - PROGRESSIVE MULTIFOCAL LEUKOENCEPHALOPATHY [None]
  - COMPLEX REGIONAL PAIN SYNDROME [None]
